FAERS Safety Report 8698203 (Version 2)
Quarter: 2013Q4

REPORT INFORMATION
  Report Type: Spontaneous
  Country: US (occurrence: US)
  Receive Date: 20120802
  Receipt Date: 20131101
  Transmission Date: 20140711
  Serious: No
  Sender: FDA-Public Use
  Company Number: US-009507513-1207USA009601

PATIENT
  Sex: Male

DRUGS (3)
  1. COZAAR [Suspect]
     Dosage: 100 MG, QD
     Route: 048
     Dates: start: 20110909, end: 20120608
  2. LIPITOR [Concomitant]
  3. DILTIAZEM HYDROCHLORIDE [Concomitant]
     Dosage: UNK
     Dates: end: 20120704

REACTIONS (3)
  - Renal impairment [Not Recovered/Not Resolved]
  - Blood creatinine increased [Not Recovered/Not Resolved]
  - Heart rate decreased [Not Recovered/Not Resolved]
